FAERS Safety Report 5971291-0 (Version None)
Quarter: 2008Q4

REPORT INFORMATION
  Report Type: 
  Country: None (occurrence: None)
  Receive Date: 20081128
  Receipt Date: 20081120
  Transmission Date: 20090506
  Serious: No
  Sender: FDA-Public Use
  Company Number: JP-PFIZER INC-2008095887

PATIENT
  Age: 63 Year
  Sex: Female

DRUGS (10)
  1. VFEND [Suspect]
     Dates: start: 20081112
  2. SOLITA-T 3G [Concomitant]
  3. VANCOMYCIN [Concomitant]
  4. NEOPHYLLIN [Concomitant]
  5. FAMOTIDINE [Concomitant]
  6. PREDONINE [Concomitant]
  7. LASIX [Concomitant]
  8. SALT SOLUTIONS [Concomitant]
  9. FINIBAX [Concomitant]
     Route: 042
     Dates: start: 20081118
  10. HEPARIN SODIUM [Concomitant]
     Route: 042
     Dates: start: 20081118

REACTIONS (1)
  - NO ADVERSE EVENT [None]
